FAERS Safety Report 4422281-0 (Version None)
Quarter: 2004Q3

REPORT INFORMATION
  Report Type: 
  Country: None (occurrence: None)
  Receive Date: 20040810
  Receipt Date: 20040802
  Transmission Date: 20050211
  Serious: Yes (Hospitalization)
  Sender: FDA-Public Use
  Company Number: US-MERCK-0408USA00228

PATIENT
  Age: 60 Year
  Sex: Female

DRUGS (2)
  1. [THERAPY UNSPECIFIED] [Suspect]
     Route: 065
  2. CANCIDAS [Suspect]
     Route: 042
     Dates: start: 20040715

REACTIONS (1)
  - RENAL FAILURE [None]
